FAERS Safety Report 20479821 (Version 1)
Quarter: 2022Q1

REPORT INFORMATION
  Report Type: Spontaneous
  Country: US (occurrence: US)
  Receive Date: 20220216
  Receipt Date: 20220216
  Transmission Date: 20220423
  Serious: No
  Sender: FDA-Public Use
  Company Number: US-PHARMING-PHAUS2022000114

PATIENT

DRUGS (2)
  1. RUCONEST [Suspect]
     Active Substance: HUMAN C1-ESTERASE INHIBITOR
     Indication: Hereditary angioedema
     Dosage: 2600 IU, TWICE WEEKLY
     Route: 042
     Dates: start: 201902
  2. RUCONEST [Suspect]
     Active Substance: HUMAN C1-ESTERASE INHIBITOR
     Dosage: 2600 IU, TWICE WEEKLY
     Route: 042
     Dates: start: 201902

REACTIONS (2)
  - Weight increased [Unknown]
  - Intentional product use issue [Unknown]
